FAERS Safety Report 8606833-X (Version None)
Quarter: 2012Q3

REPORT INFORMATION
  Report Type: 
  Country: None (occurrence: None)
  Receive Date: 20120820
  Receipt Date: 20120815
  Transmission Date: 20120928
  Serious: Yes (Other)
  Sender: FDA-Public Use
  Company Number: CA-ROCHE-1103229

PATIENT
  Sex: Female
  Weight: 74.002 kg

DRUGS (22)
  1. RENA-VITE [Concomitant]
  2. MAGNESIUM CITRATE [Concomitant]
  3. MABTHERA [Suspect]
     Indication: SCLERODERMA
     Route: 042
     Dates: start: 20100317
  4. CUPRIMINE [Concomitant]
  5. AMLODIPINE [Concomitant]
  6. FERROUS FUMARATE [Concomitant]
  7. DOMPERIDONE [Concomitant]
  8. RABEPRAZOLE SODIUM [Concomitant]
  9. ASPIRIN [Concomitant]
  10. CONJUGATED ESTROGENS [Concomitant]
  11. PREDNISONE [Concomitant]
  12. ARANESP [Concomitant]
  13. MIRTAZAPINE [Concomitant]
  14. SYNTHROID [Concomitant]
  15. NOVORAPID [Concomitant]
  16. GABAPENTIN [Concomitant]
  17. LOVAZA [Concomitant]
  18. HYDROMORPHONE HYDROCHLORIDE [Concomitant]
  19. VITAMIN B-12 [Concomitant]
  20. VITAMIN E [Concomitant]
  21. MEDROXYPROGESTERONE [Concomitant]
  22. TYLENOL [Concomitant]

REACTIONS (5)
  - ESCHERICHIA INFECTION [None]
  - PAPILLOEDEMA [None]
  - GASTROINTESTINAL HAEMORRHAGE [None]
  - GASTRIC POLYPS [None]
  - BLINDNESS [None]
